FAERS Safety Report 14511241 (Version 1)
Quarter: 2018Q1

REPORT INFORMATION
  Report Type: Spontaneous
  Country: JP (occurrence: JP)
  Receive Date: 20180209
  Receipt Date: 20180209
  Transmission Date: 20180509
  Serious: Yes (Hospitalization)
  Sender: FDA-Public Use
  Company Number: JP-UCBSA-2018004605

PATIENT
  Age: 8 Decade

DRUGS (1)
  1. NEUPRO [Suspect]
     Active Substance: ROTIGOTINE
     Indication: PRODUCT USED FOR UNKNOWN INDICATION
     Dosage: 12 MG, ONCE DAILY (QD)
     Route: 062

REACTIONS (2)
  - Altered state of consciousness [Recovering/Resolving]
  - Sudden onset of sleep [Unknown]

NARRATIVE: CASE EVENT DATE: 20180129
